FAERS Safety Report 9910118 (Version 1)
Quarter: 2014Q1

REPORT INFORMATION
  Report Type: Spontaneous
  Country: US (occurrence: None)
  Receive Date: 20140212
  Receipt Date: 20140212
  Transmission Date: 20141002
  Serious: Yes (Life-Threatening, Other)
  Sender: FDA-Public Use
  Company Number: 001663498A

PATIENT
  Age: 54 Year
  Sex: Female

DRUGS (2)
  1. SHEER COVER STUDIO NOURISHING MOISTURIZER SPF 15 [Suspect]
     Route: 061
     Dates: start: 20140111, end: 20140112
  2. HYPERTENSION MEDICATION [Concomitant]

REACTIONS (4)
  - Blister [None]
  - Dyspnoea [None]
  - Pharyngeal oedema [None]
  - Anaphylactic reaction [None]
